FAERS Safety Report 5001713-3 (Version None)
Quarter: 2006Q2

REPORT INFORMATION
  Report Type: 
  Country: None (occurrence: None)
  Receive Date: 20060512
  Receipt Date: 20060512
  Transmission Date: 20061013
  Serious: Yes (Life-Threatening)
  Sender: FDA-Public Use
  Company Number: None

PATIENT
  Age: 49 Year
  Sex: Male
  Weight: 79.3795 kg

DRUGS (8)
  1. RITUXAN [Suspect]
     Indication: B-CELL LYMPHOMA
     Dosage: 750MG  IV
     Route: 042
     Dates: start: 20060316
  2. FLUDARA [Concomitant]
  3. ALLOPURINOL [Concomitant]
  4. NORVASC [Concomitant]
  5. COREG [Concomitant]
  6. LISINOPIL [Concomitant]
  7. CLONIDINE [Concomitant]
  8. NIACIN [Concomitant]

REACTIONS (4)
  - DYSPNOEA [None]
  - HYPOXIA [None]
  - INFUSION RELATED REACTION [None]
  - PULMONARY OEDEMA [None]
